FAERS Safety Report 6518067-3 (Version None)
Quarter: 2009Q4

REPORT INFORMATION
  Report Type: 
  Country: None (occurrence: None)
  Receive Date: 20091224
  Receipt Date: 20091216
  Transmission Date: 20100525
  Serious: Yes (Other)
  Sender: FDA-Public Use
  Company Number: PT-JNJFOC-20091204840

PATIENT
  Age: 66 Year
  Sex: Female
  Weight: 70 kg

DRUGS (6)
  1. TOPAMAX [Suspect]
     Indication: DRUG THERAPY
     Route: 048
  2. LEVOTHYROXINE SODIUM [Concomitant]
     Indication: THYROID DISORDER
     Route: 048
  3. ISMO RETARD [Concomitant]
     Indication: DRUG USE FOR UNKNOWN INDICATION
     Dosage: 40 MG IN THE MORNING
     Route: 048
  4. HERBESSER [Concomitant]
     Indication: HYPERTENSION
     Dosage: 90 MG PER DAY DIVIDED IN HALF TABLET IN THE MORNING AND ANOTHER HALF AT DINNER
     Route: 048
  5. VASTAREL [Concomitant]
     Indication: DRUG USE FOR UNKNOWN INDICATION
     Dosage: 1 IN THE MORNING, 2 AT DINNER
     Route: 048
  6. INEGY [Concomitant]
     Indication: HYPERCHOLESTEROLAEMIA
     Dosage: 20 MG/10 MG, 1 AT DINNER
     Route: 048

REACTIONS (2)
  - OFF LABEL USE [None]
  - RETINAL HAEMORRHAGE [None]
